FAERS Safety Report 9169848 (Version 2)
Quarter: 2013Q2

REPORT INFORMATION
  Report Type: Spontaneous
  Country: CA (occurrence: CA)
  Receive Date: 20130319
  Receipt Date: 20130404
  Transmission Date: 20140414
  Serious: Yes (Hospitalization)
  Sender: FDA-Public Use
  Company Number: CA-AMGEN-CANSP2013017683

PATIENT
  Age: 61 Year
  Sex: Male

DRUGS (13)
  1. ENBREL [Suspect]
     Indication: RHEUMATOID ARTHRITIS
     Dosage: 50 MG, QWK
     Dates: start: 20120930
  2. ACTONEL [Concomitant]
     Dosage: UNK UNK, QWK
  3. PREDNISONE [Concomitant]
     Dosage: 5 MG, BID
  4. CODEINE [Concomitant]
     Dosage: 30 MG, PRN
  5. METHOTREXATE [Concomitant]
     Dosage: 2.5 UNK, UNK 6 TABS
  6. ASA [Concomitant]
     Dosage: 81 MG, UNK
  7. PANTOPRAZOLE                       /01263204/ [Concomitant]
     Dosage: 40 MG, QD
  8. LEFLUNOMIDE [Concomitant]
     Dosage: 20 MG, EVERY OTHER DAY
  9. HYDROCHLOROTHIAZID [Concomitant]
     Dosage: 12.5 MG, QD 1 TAB
  10. BISOPROLOL FUMARATE [Concomitant]
     Dosage: 5MG OD, 1 1/2 TABS
  11. FOLIC ACID [Concomitant]
     Dosage: 5 MG, QD
  12. RAMIPRIL [Concomitant]
     Dosage: 10 MG, QD
  13. ATORVASTATIN [Concomitant]
     Dosage: 80 MG, HS QD

REACTIONS (1)
  - Arterial occlusive disease [Recovered/Resolved]
